FAERS Safety Report 15877414 (Version 2)
Quarter: 2019Q1

REPORT INFORMATION
  Report Type: Spontaneous
  Country: US (occurrence: US)
  Receive Date: 20190128
  Receipt Date: 20190214
  Transmission Date: 20190417
  Serious: No
  Sender: FDA-Public Use
  Company Number: US-CELGENEUS-USA-20190107150

PATIENT
  Age: 17 Year
  Sex: Female

DRUGS (4)
  1. OTEZLA [Suspect]
     Active Substance: APREMILAST
     Indication: PSORIASIS
     Dosage: 60 MILLIGRAM
     Route: 048
     Dates: start: 20180108, end: 20180805
  2. OTEZLA [Suspect]
     Active Substance: APREMILAST
     Indication: PRODUCT USE ISSUE
     Dosage: 60 MILLIGRAM
     Route: 048
     Dates: end: 201901
  3. DERMA-SMOOTH/FS [Concomitant]
     Indication: PSORIASIS
     Dosage: .05 PERCENT
     Route: 061
     Dates: start: 20160823
  4. CLOBETASOL [Concomitant]
     Active Substance: CLOBETASOL
     Indication: PSORIASIS
     Dosage: .1 PERCENT
     Route: 061
     Dates: start: 20170829

REACTIONS (1)
  - Therapy non-responder [Unknown]

NARRATIVE: CASE EVENT DATE: 20190117
